FAERS Safety Report 4360819-2 (Version None)
Quarter: 2004Q2

REPORT INFORMATION
  Report Type: 
  Country: None (occurrence: None)
  Receive Date: 20040517
  Receipt Date: 20040416
  Transmission Date: 20050107
  Serious: No
  Sender: FDA-Public Use
  Company Number: 2004-115515-NL

PATIENT
  Sex: Female

DRUGS (1)
  1. FOLLITROPIN BETA [Suspect]

REACTIONS (5)
  - ANAPHYLACTIC REACTION [None]
  - CIRCULATORY COLLAPSE [None]
  - LOSS OF CONSCIOUSNESS [None]
  - MUSCLE CRAMP [None]
  - OPISTHOTONUS [None]
